FAERS Safety Report 21971862 (Version 2)
Quarter: 2023Q1

REPORT INFORMATION
  Report Type: Report from Study
  Country: CN (occurrence: None)
  Receive Date: 20230209
  Receipt Date: 20230214
  Transmission Date: 20230418
  Serious: Yes (Death)
  Sender: FDA-Public Use
  Company Number: CN-ROCHE-3282240

PATIENT
  Age: 68 Year
  Sex: Male
  Weight: 65 kg

DRUGS (10)
  1. RITUXIMAB [Suspect]
     Active Substance: RITUXIMAB
     Indication: Diffuse large B-cell lymphoma
     Dosage: 1Q3W, RECEIVED CYCLE 1 DAY 1 OF RITUXIMAB ON 01/FEB/2023
     Route: 042
     Dates: start: 20230201, end: 20230201
  2. BENDAMUSTINE [Suspect]
     Active Substance: BENDAMUSTINE
     Indication: Diffuse large B-cell lymphoma
     Dosage: RECEIVED CYCLE 1 DAY 2 OF BENDAMUSTINE ON 02/FEB/2023
     Route: 042
     Dates: start: 20230201, end: 20230202
  3. ACETAMINOPHEN [Concomitant]
     Active Substance: ACETAMINOPHEN
     Dates: start: 20230201, end: 20230201
  4. LORATADINE [Concomitant]
     Active Substance: LORATADINE
     Dates: start: 20230201, end: 20230201
  5. METHYLPREDNISOLONE [Concomitant]
     Active Substance: METHYLPREDNISOLONE
     Dates: start: 20230201, end: 20230201
  6. BENZBROMARONE [Concomitant]
     Active Substance: BENZBROMARONE
     Dates: start: 20230201, end: 20230202
  7. SODIUM BICARBONATE [Concomitant]
     Active Substance: SODIUM BICARBONATE
     Dosage: 5 PERCENT; 01-F
     Dates: start: 20230201, end: 20230202
  8. PALONOSETRON HYDROCHLORIDE [Concomitant]
     Active Substance: PALONOSETRON HYDROCHLORIDE
     Dates: start: 20230201, end: 20230202
  9. OMEPRAZOLE [Concomitant]
     Active Substance: OMEPRAZOLE
     Dates: start: 20230201, end: 20230202
  10. FUROSEMIDE [Concomitant]
     Active Substance: FUROSEMIDE
     Dates: start: 20230201, end: 20230202

REACTIONS (1)
  - Death [Fatal]

NARRATIVE: CASE EVENT DATE: 20230203
